FAERS Safety Report 24202791 (Version 1)
Quarter: 2024Q3

REPORT INFORMATION
  Report Type: Spontaneous
  Country: US (occurrence: US)
  Receive Date: 20240813
  Receipt Date: 20240813
  Transmission Date: 20241017
  Serious: Yes (Death)
  Sender: PAREXEL
  Company Number: US-COHERUS BIOSCIENCES, INC-2024-COH-US000712

PATIENT

DRUGS (3)
  1. UDENYCA [Suspect]
     Active Substance: PEGFILGRASTIM-CBQV
     Indication: Prophylaxis
     Dosage: 6 MG
     Route: 058
     Dates: start: 2024, end: 20240509
  2. TECENTRIQ [Concomitant]
     Active Substance: ATEZOLIZUMAB
  3. NPLATE [Concomitant]
     Active Substance: ROMIPLOSTIM

REACTIONS (1)
  - Lung neoplasm malignant [Fatal]

NARRATIVE: CASE EVENT DATE: 20240305
